FAERS Safety Report 16571144 (Version 1)
Quarter: 2019Q3

REPORT INFORMATION
  Report Type: Spontaneous
  Country: US (occurrence: US)
  Receive Date: 20190712
  Receipt Date: 20190712
  Transmission Date: 20191004
  Serious: No
  Sender: FDA-Public Use
  Company Number: None

PATIENT
  Age: 47 Year
  Sex: Female
  Weight: 58.5 kg

DRUGS (3)
  1. CVS HEALTH PRESERVATIVE FREE LUBRICANT GEL DROPS 30 STERILE SINGLE-USE (CARBOXYMETHYLCELLULOSE SODIUM) [Suspect]
     Active Substance: CARBOXYMETHYLCELLULOSE SODIUM
     Indication: DRY EYE
     Dosage: ?          QUANTITY:30 CONTAINERS;?
     Route: 047
     Dates: start: 20190605, end: 20190711
  2. CVS HEALTH PRESERVATIVE FREE LUBRICANT GEL DROPS 30 STERILE SINGLE-USE (CARBOXYMETHYLCELLULOSE SODIUM) [Suspect]
     Active Substance: CARBOXYMETHYLCELLULOSE SODIUM
     Indication: CHALAZION
     Dosage: ?          QUANTITY:30 CONTAINERS;?
     Route: 047
     Dates: start: 20190605, end: 20190711
  3. DAILY WOMEN^S MULTI-VITAMIN [Concomitant]

REACTIONS (4)
  - Product quality control issue [None]
  - Product sterility lacking [None]
  - Chalazion [None]
  - Recalled product administered [None]

NARRATIVE: CASE EVENT DATE: 20190609
